FAERS Safety Report 15858414 (Version 2)
Quarter: 2019Q1

REPORT INFORMATION
  Report Type: Spontaneous
  Country: US (occurrence: US)
  Receive Date: 20190123
  Receipt Date: 20190306
  Transmission Date: 20190417
  Serious: Yes (Hospitalization)
  Sender: FDA-Public Use
  Company Number: US-PFIZER INC-2019023269

PATIENT
  Age: 80 Year
  Sex: Female
  Weight: 87.9 kg

DRUGS (1)
  1. AROMASIN [Suspect]
     Active Substance: EXEMESTANE
     Indication: BREAST CANCER
     Dosage: 25 MG, 1X/DAY
     Route: 048
     Dates: end: 20190111

REACTIONS (4)
  - Rash generalised [Recovered/Resolved]
  - Erythema [Recovered/Resolved]
  - Weight increased [Recovered/Resolved]
  - Blood pressure increased [Recovered/Resolved]
